FAERS Safety Report 15765969 (Version 1)
Quarter: 2018Q4

REPORT INFORMATION
  Report Type: Spontaneous
  Country: US (occurrence: US)
  Receive Date: 20181227
  Receipt Date: 20181227
  Transmission Date: 20190205
  Serious: No
  Sender: FDA-Public Use
  Company Number: US-SA-2018SA391995

PATIENT
  Age: 69 Year
  Sex: Female

DRUGS (1)
  1. ZANTAC 75 [Suspect]
     Active Substance: RANITIDINE HYDROCHLORIDE
     Indication: GASTRITIS
     Dosage: 1 DF, QD
     Route: 065

REACTIONS (5)
  - Neck pain [Recovered/Resolved]
  - Expired product administered [Unknown]
  - Musculoskeletal pain [Recovered/Resolved]
  - Headache [Unknown]
  - Back pain [Recovered/Resolved]
